FAERS Safety Report 13877910 (Version 4)
Quarter: 2017Q4

REPORT INFORMATION
  Report Type: Report from Study
  Country: JP (occurrence: JP)
  Receive Date: 20170817
  Receipt Date: 20171124
  Transmission Date: 20180320
  Serious: Yes (Hospitalization, Other)
  Sender: FDA-Public Use
  Company Number: JP-ARIAD PHARMACEUTICALS, INC-2017JP008733

PATIENT
  Age: 82 Year
  Sex: Male
  Weight: 52 kg

DRUGS (9)
  1. PONATINIB [Suspect]
     Active Substance: PONATINIB
     Indication: ACUTE LYMPHOCYTIC LEUKAEMIA
     Dosage: 15 MG, QD
     Route: 048
     Dates: start: 20170317, end: 20170319
  2. PONATINIB [Suspect]
     Active Substance: PONATINIB
     Dosage: 15 MG, QD
     Route: 048
     Dates: start: 20170615, end: 20170616
  3. SPRYCEL [Concomitant]
     Active Substance: DASATINIB
     Dosage: 100 MG, UNK
     Route: 065
     Dates: start: 20170208, end: 20170221
  4. PONATINIB [Suspect]
     Active Substance: PONATINIB
     Dosage: 15 MG, QD
     Route: 048
     Dates: start: 20170612, end: 20170612
  5. SPRYCEL [Concomitant]
     Active Substance: DASATINIB
     Indication: ACUTE LYMPHOCYTIC LEUKAEMIA
     Dosage: 50 MG, UNK
     Route: 065
     Dates: start: 20161114, end: 20161218
  6. SPRYCEL [Concomitant]
     Active Substance: DASATINIB
     Dosage: 140 MG, UNK
     Route: 065
     Dates: start: 20170222, end: 20170316
  7. PONATINIB [Suspect]
     Active Substance: PONATINIB
     Dosage: 15 MG, QD
     Route: 048
     Dates: start: 20170519, end: 20170519
  8. PONATINIB [Suspect]
     Active Substance: PONATINIB
     Dosage: UNK
     Route: 048
     Dates: start: 20170704
  9. SPRYCEL [Concomitant]
     Active Substance: DASATINIB
     Dosage: 70 MG, UNK
     Route: 065
     Dates: start: 20161219, end: 20170207

REACTIONS (5)
  - Neutrophil count decreased [Recovered/Resolved]
  - Tumour lysis syndrome [Recovered/Resolved]
  - Disseminated intravascular coagulation [Recovering/Resolving]
  - Transient ischaemic attack [Recovered/Resolved]
  - Neutrophil count decreased [Recovered/Resolved]

NARRATIVE: CASE EVENT DATE: 20170322
